FAERS Safety Report 4374801-2 (Version None)
Quarter: 2004Q2

REPORT INFORMATION
  Report Type: 
  Country: None (occurrence: None)
  Receive Date: 20040604
  Receipt Date: 20030124
  Transmission Date: 20050107
  Serious: Yes (Hospitalization)
  Sender: FDA-Public Use
  Company Number: 222097

PATIENT
  Age: 50 Year
  Sex: Male
  Weight: 70 kg

DRUGS (1)
  1. NOVOMIX? 30 PENFILL 3 ML (NOVOMIX? 30 PENFILL 3 ML) (INSULIN ASPART) [Suspect]
     Indication: DIABETES MELLITUS NON-INSULIN-DEPENDENT
     Dosage: 24 IU, QD, SUBCUTANEOUS
     Route: 058
     Dates: start: 20021115

REACTIONS (2)
  - DISEASE RECURRENCE [None]
  - GASTRITIS [None]
